FAERS Safety Report 21987996 (Version 1)
Quarter: 2023Q1

REPORT INFORMATION
  Report Type: Report from Study
  Country: FR (occurrence: FR)
  Receive Date: 20230214
  Receipt Date: 20230214
  Transmission Date: 20230417
  Serious: No
  Sender: FDA-Public Use
  Company Number: FR-Global Blood Therapeutics Inc-FR-GBT-22-00383

PATIENT
  Age: 24 Year
  Sex: Female
  Weight: 65 kg

DRUGS (5)
  1. VOXELOTOR [Suspect]
     Active Substance: VOXELOTOR
     Indication: Asthenia
     Route: 048
     Dates: start: 20220106
  2. OXBRYTA [Suspect]
     Active Substance: VOXELOTOR
     Indication: Asthenia
     Route: 048
     Dates: start: 20220106
  3. HYDROXYUREA [Concomitant]
     Active Substance: HYDROXYUREA
     Indication: Product used for unknown indication
     Dosage: NOT PROVIDED
  4. RED BLOOD CELLS UNITS (TRANSFUSIONS) [Concomitant]
     Indication: Product used for unknown indication
     Dosage: 6 UNITS SINCE 12-JUL-2021
     Dates: start: 20210712
  5. POLY-KARAYA [Concomitant]

REACTIONS (4)
  - Abdominal distension [Not Recovered/Not Resolved]
  - Pruritus [Recovered/Resolved]
  - Diarrhoea [Recovered/Resolved]
  - Abdominal pain [Not Recovered/Not Resolved]

NARRATIVE: CASE EVENT DATE: 20220108
